FAERS Safety Report 5952587-5 (Version None)
Quarter: 2008Q4

REPORT INFORMATION
  Report Type: 
  Country: None (occurrence: None)
  Receive Date: 20081029
  Receipt Date: 20080116
  Transmission Date: 20090506
  Serious: Yes (Other)
  Sender: FDA-Public Use
  Company Number: 44333

PATIENT
  Age: 66 Year
  Sex: Female
  Weight: 82.1011 kg

DRUGS (1)
  1. METHOTREXATE [Suspect]
     Indication: RHEUMATOID ARTHRITIS
     Dosage: TWICE A WEEK - SUBCUTANEOUS INJECTIONS
     Route: 058

REACTIONS (1)
  - RASH [None]
